FAERS Safety Report 21044851 (Version 1)
Quarter: 2022Q3

REPORT INFORMATION
  Report Type: Other
  Country: US (occurrence: None)
  Receive Date: 20220705
  Receipt Date: 20220705
  Transmission Date: 20221027
  Serious: Yes (Hospitalization, Other)
  Sender: FDA-Public Use
  Company Number: US-Invatech-000255

PATIENT
  Age: 81 Year
  Sex: Female

DRUGS (2)
  1. NAPROXEN [Suspect]
     Active Substance: NAPROXEN
     Indication: Back pain
  2. LISINOPRIL [Concomitant]
     Active Substance: LISINOPRIL
     Indication: Hypertension

REACTIONS (5)
  - Erythema multiforme [Recovered/Resolved]
  - Target skin lesion [Recovered/Resolved]
  - Blood pressure increased [Unknown]
  - Epidermal necrosis [Recovered/Resolved]
  - Type IV hypersensitivity reaction [Recovered/Resolved]
